FAERS Safety Report 7062906-7 (Version None)
Quarter: 2010Q4

REPORT INFORMATION
  Report Type: 
  Country: None (occurrence: None)
  Receive Date: 20101026
  Receipt Date: 20100225
  Transmission Date: 20110411
  Serious: Yes (Other)
  Sender: FDA-Public Use
  Company Number: US-PFIZER INC-2010025458

PATIENT
  Sex: Female
  Weight: 77.098 kg

DRUGS (9)
  1. LIPITOR [Suspect]
     Indication: BLOOD CHOLESTEROL INCREASED
     Dosage: 10 MG, 1X/DAY
     Route: 048
     Dates: end: 20100101
  2. MONTELUKAST SODIUM [Concomitant]
     Indication: ASTHMA
     Dosage: 10 MG, 1X/DAY
     Route: 048
  3. EVISTA [Concomitant]
     Dosage: 60 MG, 1X/DAY
     Route: 048
  4. ALLEGRA [Concomitant]
     Indication: HYPERSENSITIVITY
     Dosage: 60 MG, 2X/DAY
     Route: 048
  5. PRILOSEC [Concomitant]
     Indication: DYSPEPSIA
     Dosage: 20 MG, 1X/DAY
     Route: 048
  6. MELOXICAM [Concomitant]
     Indication: ARTHRITIS
     Dosage: 15 MG, 1X/DAY
     Route: 048
  7. MAXAIR [Concomitant]
     Indication: ASTHMA
     Dosage: UNK
  8. FLOVENT [Concomitant]
     Indication: ASTHMA
     Dosage: UNK
  9. ATROVENT [Concomitant]
     Indication: ASTHMA
     Dosage: UNK

REACTIONS (1)
  - MUSCLE SPASMS [None]
